FAERS Safety Report 6502492-0 (Version None)
Quarter: 2009Q4

REPORT INFORMATION
  Report Type: 
  Country: None (occurrence: None)
  Receive Date: 20091217
  Receipt Date: 20091207
  Transmission Date: 20100525
  Serious: Yes (Hospitalization)
  Sender: FDA-Public Use
  Company Number: US-BIOGENIDEC-2009BI038390

PATIENT
  Age: 44 Year
  Sex: Female
  Weight: 70 kg

DRUGS (6)
  1. TYSABRI [Suspect]
     Indication: MULTIPLE SCLEROSIS
     Route: 042
     Dates: start: 20080318
  2. BOTOX [Concomitant]
     Indication: FALL
  3. ADVIL [Concomitant]
     Indication: DRUG USE FOR UNKNOWN INDICATION
  4. ZANAFLEX [Concomitant]
     Indication: DRUG USE FOR UNKNOWN INDICATION
  5. ANTIDEPRESSANT (NOS) [Concomitant]
     Indication: DEPRESSION
  6. NEXIUM [Concomitant]
     Indication: DRUG USE FOR UNKNOWN INDICATION

REACTIONS (7)
  - BRONCHITIS [None]
  - FATIGUE [None]
  - IMMUNE SYSTEM DISORDER [None]
  - MULTIPLE SCLEROSIS [None]
  - NERVE COMPRESSION [None]
  - PAIN IN EXTREMITY [None]
  - PERONEAL NERVE PALSY [None]
